FAERS Safety Report 5072908-8 (Version None)
Quarter: 2006Q3

REPORT INFORMATION
  Report Type: 
  Country: None (occurrence: None)
  Receive Date: 20060802
  Receipt Date: 20060710
  Transmission Date: 20061208
  Serious: Yes (Death, Other)
  Sender: FDA-Public Use
  Company Number: 6024149

PATIENT
  Age: 40 Year
  Sex: Female

DRUGS (3)
  1. CARDENSIEL                   (BISOPROLOL FUMARATE) [Suspect]
     Indication: MITRAL VALVE INCOMPETENCE
     Dosage: 3,75 MG (3,75 MG, 1 IN 1 D)  FOR MANY YEARS
  2. LOVENOX [Suspect]
     Indication: THROMBOSIS
     Dosage: FOR MANY YEARS
  3. CIPRALAN [Concomitant]

REACTIONS (2)
  - DRUG EXPOSURE DURING PREGNANCY [None]
  - INTRA-UTERINE DEATH [None]
